FAERS Safety Report 5887370-2 (Version None)
Quarter: 2008Q3

REPORT INFORMATION
  Report Type: 
  Country: None (occurrence: None)
  Receive Date: 20080917
  Receipt Date: 20080917
  Transmission Date: 20090109
  Serious: Yes (Life-Threatening, Other)
  Sender: FDA-Public Use
  Company Number: None

PATIENT
  Sex: Male
  Weight: 97.5234 kg

DRUGS (2)
  1. BENAZEPRIL HCL 40 MG. [Suspect]
     Dosage: 1/2 PILL DAILY
     Dates: start: 20080815
  2. BENAZEPRIL HCL 40 MG. [Suspect]
     Dosage: 1/2 PILL DAILY
     Dates: start: 20080816

REACTIONS (2)
  - BLOOD PRESSURE DECREASED [None]
  - PHARMACEUTICAL PRODUCT COMPLAINT [None]
